FAERS Safety Report 4301432-2 (Version None)
Quarter: 2004Q1

REPORT INFORMATION
  Report Type: 
  Country: None (occurrence: None)
  Receive Date: 20040219
  Receipt Date: 20040205
  Transmission Date: 20041129
  Serious: Yes (Other)
  Sender: FDA-Public Use
  Company Number: SUS1-2004-00084

PATIENT
  Age: 24 Year
  Sex: Female

DRUGS (1)
  1. CARBATROL [Suspect]
     Indication: EPILEPSY
     Dosage: 400 MG

REACTIONS (4)
  - ANXIETY [None]
  - COMPULSIONS [None]
  - LEUKOPENIA [None]
  - NERVOUS SYSTEM DISORDER [None]
